FAERS Safety Report 11468022 (Version 4)
Quarter: 2019Q2

REPORT INFORMATION
  Report Type: Spontaneous
  Country: US (occurrence: US)
  Receive Date: 20150908
  Receipt Date: 20190610
  Transmission Date: 20190711
  Serious: Yes (Hospitalization)
  Sender: FDA-Public Use
  Company Number: US-PFIZER INC-2015293925

PATIENT
  Age: 53 Year
  Sex: Female

DRUGS (1)
  1. ESTRING [Suspect]
     Active Substance: ESTRADIOL
     Indication: VULVOVAGINAL DRYNESS
     Dosage: UNK
     Dates: start: 2002, end: 2004

REACTIONS (3)
  - Urethral stenosis [Recovered/Resolved]
  - Discomfort [Unknown]
  - Bladder disorder [Unknown]

NARRATIVE: CASE EVENT DATE: 2004
